FAERS Safety Report 9734336 (Version 3)
Quarter: 2014Q1

REPORT INFORMATION
  Report Type: Spontaneous
  Country: JP (occurrence: JP)
  Receive Date: 20131206
  Receipt Date: 20140102
  Transmission Date: 20141002
  Serious: Yes (Other)
  Sender: FDA-Public Use
  Company Number: JP-ROCHE-1311251

PATIENT
  Age: 57 Year
  Sex: Female
  Weight: 47 kg

DRUGS (9)
  1. PERJETA [Suspect]
     Indication: BREAST CANCER
     Dosage: STRENGTH : 420MG/14ML
     Route: 041
     Dates: start: 20131010
  2. PERJETA [Suspect]
     Route: 041
     Dates: start: 20131101, end: 20131101
  3. HERCEPTIN [Suspect]
     Indication: BREAST CANCER
     Route: 041
     Dates: start: 20130919, end: 20131101
  4. DOCETAXEL [Suspect]
     Indication: BREAST CANCER
     Dosage: DOSAGE IS UNCERTAIN.
     Route: 041
     Dates: start: 20130919, end: 20131101
  5. NEXIUM [Concomitant]
     Indication: PROPHYLAXIS
     Route: 048
     Dates: start: 20130816
  6. OXYCONTIN [Concomitant]
     Indication: BREAST CANCER
     Route: 048
     Dates: start: 20130920
  7. ALLEGRA [Concomitant]
     Indication: PROPHYLAXIS
     Route: 048
     Dates: start: 20130924
  8. LOXONIN [Concomitant]
     Indication: BREAST CANCER
     Route: 048
     Dates: start: 20130816
  9. MAGMITT [Concomitant]
     Indication: CONSTIPATION
     Route: 048
     Dates: start: 20130910

REACTIONS (2)
  - Interstitial lung disease [Not Recovered/Not Resolved]
  - Rash [Unknown]
